FAERS Safety Report 20123891 (Version 1)
Quarter: 2021Q4

REPORT INFORMATION
  Report Type: Spontaneous
  Country: US (occurrence: US)
  Receive Date: 20211129
  Receipt Date: 20211129
  Transmission Date: 20220303
  Serious: Yes (Other)
  Sender: FDA-Public Use
  Company Number: US-drreddys-LIT/USA/21/0143967

PATIENT
  Age: 29 Year
  Sex: Female

DRUGS (4)
  1. LAMOTRIGINE [Suspect]
     Active Substance: LAMOTRIGINE
     Indication: Seizure
  2. LAMOTRIGINE [Suspect]
     Active Substance: LAMOTRIGINE
     Dosage: 4.5 YEARS ( FLUOXETINE WAS INCREASED BACK TO 20 MG PER DAY)
  3. LEVETIRACETAM [Suspect]
     Active Substance: LEVETIRACETAM
     Indication: Seizure
     Dosage: DUE TO A CONCERN OF DRUG RASH DISCONTINUED. RE-STARTED ON LEVETIRACETAM AT A LOW DOSE FOR SEIZURE MA
  4. LACOSAMIDE [Suspect]
     Active Substance: LACOSAMIDE
     Indication: Seizure
     Dosage: DOSE OF LACOSAMIDE WAS DOUBLED

REACTIONS (2)
  - Cross sensitivity reaction [Unknown]
  - Drug reaction with eosinophilia and systemic symptoms [Recovered/Resolved]
